FAERS Safety Report 22216335 (Version 1)
Quarter: 2023Q2

REPORT INFORMATION
  Report Type: Other
  Country: US (occurrence: None)
  Receive Date: 20230417
  Receipt Date: 20230417
  Transmission Date: 20230721
  Serious: Yes (Other)
  Sender: FDA-Public Use
  Company Number: US-ROCHE-3329666

PATIENT
  Age: 90 Year
  Sex: Female

DRUGS (3)
  1. RITUXIMAB [Suspect]
     Active Substance: RITUXIMAB
     Indication: B-cell lymphoma
     Dosage: 1.0 MG/0.1 ML
     Route: 050
  2. METHOTREXATE [Concomitant]
     Active Substance: METHOTREXATE
     Route: 050
  3. METHOTREXATE [Concomitant]
     Active Substance: METHOTREXATE
     Route: 050

REACTIONS (4)
  - Uveitis [Unknown]
  - Ocular hypertension [Recovering/Resolving]
  - Vitritis [Unknown]
  - Retinal occlusive vasculitis [Unknown]
